FAERS Safety Report 8428012-1 (Version None)
Quarter: 2012Q2

REPORT INFORMATION
  Report Type: 
  Country: None (occurrence: None)
  Receive Date: 20120611
  Receipt Date: 20110608
  Transmission Date: 20120825
  Serious: No
  Sender: FDA-Public Use
  Company Number: US-ABBOTT-11P-163-0731709-00

PATIENT
  Sex: Male

DRUGS (6)
  1. METFORMIN HCL [Concomitant]
     Indication: DIABETES MELLITUS
  2. K-TAB [Suspect]
     Dates: start: 20110501, end: 20110501
  3. ATENOLOL [Concomitant]
     Indication: HYPERTENSION
  4. K-TAB [Suspect]
     Indication: BLOOD POTASSIUM DECREASED
     Dates: start: 20101001
  5. K-TAB [Suspect]
     Dates: end: 20101201
  6. DIOVAN [Concomitant]
     Indication: HYPERTENSION

REACTIONS (2)
  - HYPERSENSITIVITY [None]
  - RASH [None]
